FAERS Safety Report 16697075 (Version 2)
Quarter: 2019Q3

REPORT INFORMATION
  Report Type: Spontaneous
  Country: US (occurrence: US)
  Receive Date: 20190813
  Receipt Date: 20190814
  Transmission Date: 20191004
  Serious: Yes (Life-Threatening, Other)
  Sender: FDA-Public Use
  Company Number: US-PFIZER INC-2019339288

PATIENT
  Age: 61 Year
  Sex: Female
  Weight: 57.61 kg

DRUGS (2)
  1. POLYSORBATE 80. [Suspect]
     Active Substance: POLYSORBATE 80
     Dosage: UNK
  2. DOCETAXEL. [Suspect]
     Active Substance: DOCETAXEL
     Indication: BREAST CANCER FEMALE
     Dosage: UNK
     Route: 042
     Dates: start: 2014, end: 2014

REACTIONS (5)
  - Loss of consciousness [Recovered/Resolved]
  - Contraindicated product administered [Unknown]
  - Feeling abnormal [Unknown]
  - Reaction to excipient [Recovered/Resolved]
  - Drug hypersensitivity [Recovered/Resolved]

NARRATIVE: CASE EVENT DATE: 2014
